FAERS Safety Report 4604708-4 (Version None)
Quarter: 2005Q2

REPORT INFORMATION
  Report Type: 
  Country: None (occurrence: None)
  Receive Date: 20050224
  Receipt Date: 20050104
  Transmission Date: 20051028
  Serious: No
  Sender: FDA-Public Use
  Company Number: SU-2005-002971

PATIENT
  Age: 63 Year
  Sex: Male
  Weight: 89.3586 kg

DRUGS (3)
  1. BENICAR [Suspect]
     Indication: HYPERTENSION
     Dosage: 40 MG QD PO
     Route: 048
     Dates: start: 20031201, end: 20050103
  2. LIPITOR [Concomitant]
  3. ASPIRIN [Concomitant]

REACTIONS (1)
  - DYSPNOEA [None]
